FAERS Safety Report 16433977 (Version 2)
Quarter: 2019Q2

REPORT INFORMATION
  Report Type: Spontaneous
  Country: JP (occurrence: JP)
  Receive Date: 20190614
  Receipt Date: 20190621
  Transmission Date: 20190711
  Serious: Yes (Hospitalization)
  Sender: FDA-Public Use
  Company Number: JP-ASTRAZENECA-2019SE31496

PATIENT
  Age: 28972 Day
  Sex: Female
  Weight: 43 kg

DRUGS (4)
  1. CELECOX [Concomitant]
     Active Substance: CELECOXIB
  2. LANSOPRAZOLE. [Concomitant]
     Active Substance: LANSOPRAZOLE
  3. TAGRISSO [Suspect]
     Active Substance: OSIMERTINIB
     Indication: NON-SMALL CELL LUNG CANCER
     Route: 048
     Dates: start: 20190109, end: 20190206
  4. TAGRISSO [Suspect]
     Active Substance: OSIMERTINIB
     Indication: NON-SMALL CELL LUNG CANCER
     Route: 048
     Dates: start: 20180921, end: 20181113

REACTIONS (7)
  - Wheezing [Unknown]
  - Interstitial lung disease [Recovering/Resolving]
  - Liver disorder [Recovered/Resolved]
  - Sputum discoloured [Unknown]
  - Rash [Recovering/Resolving]
  - Oropharyngeal pain [Unknown]
  - Headache [Unknown]

NARRATIVE: CASE EVENT DATE: 20181031
